FAERS Safety Report 8053414-5 (Version None)
Quarter: 2012Q1

REPORT INFORMATION
  Report Type: 
  Country: None (occurrence: None)
  Receive Date: 20120118
  Receipt Date: 20120116
  Transmission Date: 20120608
  Serious: Yes (Other)
  Sender: FDA-Public Use
  Company Number: US-GLAXOSMITHKLINE-A0951873A

PATIENT
  Age: 44 Year
  Sex: Female

DRUGS (3)
  1. CLARITIN [Concomitant]
  2. IBUPROFEN (ADVIL) [Concomitant]
  3. FLOVENT [Suspect]
     Indication: SEASONAL ALLERGY
     Dosage: 2PUFF TWICE PER DAY
     Route: 055
     Dates: start: 20111025, end: 20111028

REACTIONS (9)
  - PHARYNGEAL OEDEMA [None]
  - HYPERSENSITIVITY [None]
  - DYSPHONIA [None]
  - STOMATITIS [None]
  - CHEST DISCOMFORT [None]
  - OROPHARYNGEAL PAIN [None]
  - PRODUCT QUALITY ISSUE [None]
  - PALPITATIONS [None]
  - MUSCLE SPASMS [None]
